FAERS Safety Report 13299712 (Version 3)
Quarter: 2020Q1

REPORT INFORMATION
  Report Type: Report from Study
  Country: US (occurrence: US)
  Receive Date: 20170306
  Receipt Date: 20200207
  Transmission Date: 20200409
  Serious: Yes (Hospitalization)
  Sender: FDA-Public Use
  Company Number: US-SA-CAMP-1002553

PATIENT
  Age: 39 Year
  Sex: Female
  Weight: 73.48 kg

DRUGS (50)
  1. ALEMTUZUMAB [Suspect]
     Active Substance: ALEMTUZUMAB
     Dosage: 24 MG,QD
     Route: 041
     Dates: start: 20090810, end: 20090810
  2. XANAX [Concomitant]
     Active Substance: ALPRAZOLAM
     Indication: PRODUCT USED FOR UNKNOWN INDICATION
  3. ZIAC [CEFIXIME] [Concomitant]
     Indication: HYPERTENSION
     Dosage: 10 MG,UNK
     Dates: start: 20110912
  4. NEURONTIN [Concomitant]
     Active Substance: GABAPENTIN
     Indication: PAIN IN EXTREMITY
     Dosage: 800 MG,UNK
     Dates: start: 20100127
  5. BISOPROLOL HYDROCHLOROTHIAZIDE CRISTERS [Concomitant]
     Active Substance: BISOPROLOL FUMARATE\HYDROCHLOROTHIAZIDE
     Indication: HYPERTENSION
     Dosage: 6.25 MG,QD
     Route: 048
     Dates: start: 20130605
  6. PROMETHAZINE [Concomitant]
     Active Substance: PROMETHAZINE HYDROCHLORIDE
     Dosage: 25, PRN
     Route: 054
     Dates: start: 20130514
  7. METHYLNALTREXONE [Concomitant]
     Active Substance: METHYLNALTREXONE
     Indication: CONSTIPATION
     Dosage: 10 MG,QOD
     Route: 030
     Dates: start: 20130530
  8. CHERATUSSIN AC [Concomitant]
     Active Substance: CODEINE PHOSPHATE\GUAIFENESIN
     Indication: BRONCHITIS
     Dosage: 1 DF,UNK
     Route: 048
     Dates: start: 20130512, end: 20130517
  9. ZITHROMAX [Concomitant]
     Active Substance: AZITHROMYCIN DIHYDRATE
     Indication: BRONCHITIS
     Dosage: 500 MG,QD
     Route: 048
     Dates: start: 20130512, end: 20130512
  10. ALPRAZOLAM. [Concomitant]
     Active Substance: ALPRAZOLAM
     Indication: PRODUCT USED FOR UNKNOWN INDICATION
     Dosage: 2 MG,PRN
     Route: 048
     Dates: start: 20130315
  11. METAMUCIL [Concomitant]
     Active Substance: PLANTAGO SEED
     Indication: CONSTIPATION
     Dosage: 1 DF,UNK
     Dates: start: 20120626
  12. MIRALAX [Concomitant]
     Active Substance: POLYETHYLENE GLYCOL 3350
     Indication: CONSTIPATION
     Dosage: 35 MG,UNK
     Dates: start: 20120626
  13. ONDANSETRON [Concomitant]
     Active Substance: ONDANSETRON
     Indication: NAUSEA
     Dosage: 4 MG,PRN
     Route: 048
     Dates: start: 20130530
  14. ALEMTUZUMAB [Suspect]
     Active Substance: ALEMTUZUMAB
     Dosage: 24 MG,QD
     Route: 041
     Dates: start: 20090812, end: 20090813
  15. ACIPHEX [Concomitant]
     Active Substance: RABEPRAZOLE SODIUM
     Indication: DUODENITIS
  16. PHENERGAN [Concomitant]
     Active Substance: PROMETHAZINE HYDROCHLORIDE
     Indication: NAUSEA
     Dosage: 25 MG,PRN
     Route: 048
     Dates: start: 20120129
  17. ALBUTEROL [SALBUTAMOL] [Concomitant]
     Active Substance: ALBUTEROL
     Indication: PRODUCT USED FOR UNKNOWN INDICATION
     Dosage: 2 DF,PRN
     Route: 055
     Dates: start: 20130315
  18. TIZANIDINE. [Concomitant]
     Active Substance: TIZANIDINE
     Indication: MUSCLE SPASMS
     Dosage: 4 MG,PRN
     Dates: start: 20110124
  19. ACIPHEX [Concomitant]
     Active Substance: RABEPRAZOLE SODIUM
     Indication: OESOPHAGITIS
     Dosage: 20 MG,UNK
     Dates: start: 20111201
  20. FLUCONAZOLE. [Concomitant]
     Active Substance: FLUCONAZOLE
     Indication: PRODUCT USED FOR UNKNOWN INDICATION
     Dosage: 200,QD
     Route: 048
     Dates: start: 20130319, end: 20130325
  21. RELISTOR [Concomitant]
     Active Substance: METHYLNALTREXONE BROMIDE
     Indication: PRODUCT USED FOR UNKNOWN INDICATION
     Dosage: 12 MG,QOD
     Route: 058
     Dates: start: 20130315, end: 20130530
  22. REGLAN [Concomitant]
     Active Substance: METOCLOPRAMIDE HYDROCHLORIDE
     Indication: PRODUCT USED FOR UNKNOWN INDICATION
     Dosage: 5 MG,TID
     Route: 048
     Dates: start: 20130315, end: 20130319
  23. CYMBALTA [Concomitant]
     Active Substance: DULOXETINE HYDROCHLORIDE
     Indication: DEPRESSION
     Dosage: 60 MG,QD
     Route: 048
     Dates: start: 20130315
  24. METHYLPREDNISOLONE. [Concomitant]
     Active Substance: METHYLPREDNISOLONE
     Dosage: 1 G,QD
     Route: 042
     Dates: start: 20080811, end: 20080815
  25. ACIPHEX [Concomitant]
     Active Substance: RABEPRAZOLE SODIUM
     Indication: GASTRITIS
  26. OMEPRAZOLE. [Concomitant]
     Active Substance: OMEPRAZOLE
     Indication: OESOPHAGITIS
     Dosage: 20 MG,UNK
     Dates: start: 20111115
  27. OMEPRAZOLE. [Concomitant]
     Active Substance: OMEPRAZOLE
     Indication: PRODUCT USED FOR UNKNOWN INDICATION
  28. BUSPAR [Concomitant]
     Active Substance: BUSPIRONE HYDROCHLORIDE
     Indication: ANXIETY
     Dosage: 20 MG,UNK
     Dates: start: 20120626
  29. BISOPROLOL HYDROCHLOROTHIAZIDE CRISTERS [Concomitant]
     Active Substance: BISOPROLOL FUMARATE\HYDROCHLOROTHIAZIDE
     Dosage: 1 DF, QD
     Route: 048
     Dates: start: 20130515, end: 20130530
  30. FLUCONAZOLE. [Concomitant]
     Active Substance: FLUCONAZOLE
     Indication: VULVOVAGINAL CANDIDIASIS
     Dosage: 150 MG,QD
     Route: 048
     Dates: start: 20130514, end: 20130516
  31. OXYCODONE HYDROCHLORIDE;PARACETAMOL [Concomitant]
     Active Substance: ACETAMINOPHEN\OXYCODONE HYDROCHLORIDE
     Indication: PAIN
     Dosage: 1 DF,PRN
     Route: 048
     Dates: start: 20130319, end: 20130701
  32. TIZANIDINE. [Concomitant]
     Active Substance: TIZANIDINE
     Indication: PAIN
     Dosage: 4 MG,PRN
     Route: 048
     Dates: start: 20130315
  33. ALEMTUZUMAB [Suspect]
     Active Substance: ALEMTUZUMAB
     Dosage: 24 MG,QD
     Route: 041
     Dates: start: 20080811, end: 20080815
  34. METHYLPREDNISOLONE. [Concomitant]
     Active Substance: METHYLPREDNISOLONE
     Indication: MULTIPLE SCLEROSIS
     Dosage: 1 G,QD
     Route: 042
     Dates: start: 20090810, end: 20090812
  35. METHYLPREDNISOLONE. [Concomitant]
     Active Substance: METHYLPREDNISOLONE
     Dosage: 1 G,QD
     Route: 042
     Dates: start: 20110803, end: 20110805
  36. XANAX [Concomitant]
     Active Substance: ALPRAZOLAM
     Indication: ANXIETY
     Dosage: 2 MG,UNK
     Dates: start: 20120916
  37. OXYCODONE [Concomitant]
     Active Substance: OXYCODONE
     Indication: PAIN
     Dosage: 1 DF,PRN
     Route: 048
     Dates: start: 20130315, end: 20130330
  38. IBUPROFEN. [Concomitant]
     Active Substance: IBUPROFEN
     Dosage: 200 MG,UNK
     Route: 048
     Dates: start: 20080811
  39. OMEPRAZOLE. [Concomitant]
     Active Substance: OMEPRAZOLE
     Indication: DUODENITIS
     Dosage: 20 MG, QD
     Route: 048
     Dates: start: 20130318
  40. NALTREXONE [Concomitant]
     Active Substance: NALTREXONE
     Indication: MULTIPLE SCLEROSIS
     Dosage: 12 MG,UNK
     Dates: start: 20120719
  41. ZOFRAN [Concomitant]
     Active Substance: ONDANSETRON HYDROCHLORIDE
     Indication: NAUSEA
     Dosage: 5 MG,1X
     Route: 042
     Dates: start: 20130530, end: 20130530
  42. XIFAXAN [Concomitant]
     Active Substance: RIFAXIMIN
     Indication: PRODUCT USED FOR UNKNOWN INDICATION
     Dosage: 550 MG,BID
     Route: 048
     Dates: start: 20130319, end: 20130328
  43. ZITHROMAX [Concomitant]
     Active Substance: AZITHROMYCIN DIHYDRATE
     Dosage: 250, QD
     Route: 048
     Dates: start: 20130513, end: 20130516
  44. DIFLUCAN [Concomitant]
     Active Substance: FLUCONAZOLE
     Indication: PRODUCT USED FOR UNKNOWN INDICATION
     Dosage: 200 MG,QD
     Route: 048
     Dates: start: 20130315, end: 20130315
  45. ALEMTUZUMAB [Suspect]
     Active Substance: ALEMTUZUMAB
     Indication: MULTIPLE SCLEROSIS
     Dosage: 12 MG,QD
     Route: 041
     Dates: start: 20110803, end: 20110805
  46. TIZANIDINE. [Concomitant]
     Active Substance: TIZANIDINE
     Indication: PAIN
  47. OMEPRAZOLE. [Concomitant]
     Active Substance: OMEPRAZOLE
     Indication: GASTRITIS
  48. REGLAN [Concomitant]
     Active Substance: METOCLOPRAMIDE HYDROCHLORIDE
     Indication: NAUSEA
     Dosage: 10 MG,PRN
     Dates: start: 20120719
  49. PROMETHAZINE [Concomitant]
     Active Substance: PROMETHAZINE HYDROCHLORIDE
     Indication: NAUSEA
     Dosage: 25 MG,PRN
     Route: 042
     Dates: start: 20130530, end: 20130603
  50. LIDODERM [Concomitant]
     Active Substance: LIDOCAINE
     Indication: PAIN
     Dosage: 1 DF,PRN
     Route: 023
     Dates: start: 20130315

REACTIONS (3)
  - Immune thrombocytopenic purpura [Not Recovered/Not Resolved]
  - Staphylococcal abscess [Recovered/Resolved]
  - Cellulitis [Recovered/Resolved]

NARRATIVE: CASE EVENT DATE: 20121029
